FAERS Safety Report 6204003-6 (Version None)
Quarter: 2009Q2

REPORT INFORMATION
  Report Type: 
  Country: None (occurrence: None)
  Receive Date: 20090526
  Receipt Date: 20090526
  Transmission Date: 20091009
  Serious: Yes (Other)
  Sender: FDA-Public Use
  Company Number: None

PATIENT

DRUGS (1)
  1. AMOXICILLIN [Suspect]
     Indication: RESPIRATORY DISORDER
     Dosage: PO
     Route: 048

REACTIONS (1)
  - TOOTH DECALCIFICATION [None]
